FAERS Safety Report 24071633 (Version 1)
Quarter: 2024Q3

REPORT INFORMATION
  Report Type: Report from Study
  Country: UY (occurrence: UY)
  Receive Date: 20240710
  Receipt Date: 20240710
  Transmission Date: 20241017
  Serious: No
  Sender: ROCHE
  Company Number: UY-ROCHE-3569507

PATIENT
  Age: 1 Year
  Sex: Female

DRUGS (1)
  1. EVRYSDI [Suspect]
     Active Substance: RISDIPLAM
     Indication: Spinal muscular atrophy
     Route: 065
     Dates: start: 202312

REACTIONS (2)
  - Blood thyroid stimulating hormone increased [Unknown]
  - Thyroxine increased [Unknown]
